FAERS Safety Report 12408693 (Version 3)
Quarter: 2017Q1

REPORT INFORMATION
  Report Type: Report from Study
  Country: MX (occurrence: MX)
  Receive Date: 20160526
  Receipt Date: 20170310
  Transmission Date: 20170428
  Serious: Yes (Other)
  Sender: FDA-Public Use
  Company Number: MX-INCYTE CORPORATION-2016IN002697

PATIENT
  Age: 84 Year
  Sex: Male

DRUGS (20)
  1. OMEPRAZOLE. [Concomitant]
     Active Substance: OMEPRAZOLE
     Dosage: 20 MG, QD
     Route: 065
  2. ALLOPURINOL. [Concomitant]
     Active Substance: ALLOPURINOL
     Dosage: UNK UNK, PRN
     Route: 065
  3. JAKAVI [Suspect]
     Active Substance: RUXOLITINIB
     Dosage: 15 MG, UNK
     Route: 065
  4. OMEPRAZOLE. [Concomitant]
     Active Substance: OMEPRAZOLE
     Dosage: 20 MG, QD
     Route: 065
  5. ALLOPURINOL. [Concomitant]
     Active Substance: ALLOPURINOL
     Dosage: UNK UNK, PRN
     Route: 065
  6. JAKAVI [Suspect]
     Active Substance: RUXOLITINIB
     Indication: MYELOFIBROSIS
     Dosage: 40 MG, UNK
     Route: 065
     Dates: start: 201506, end: 201603
  7. OMEPRAZOLE. [Concomitant]
     Active Substance: OMEPRAZOLE
     Indication: HIATUS HERNIA
     Dosage: 20 MG, QD
     Route: 065
  8. CINITAPRIDE [Concomitant]
     Dosage: 1 MG, UNK (BEFORE EACH MEAL)
  9. OMEPRAZOLE. [Concomitant]
     Active Substance: OMEPRAZOLE
     Dosage: 20 MG, QD
     Route: 065
  10. JAKAVI [Suspect]
     Active Substance: RUXOLITINIB
     Dosage: 20 MG, UNK
     Route: 065
  11. JAKAVI [Suspect]
     Active Substance: RUXOLITINIB
     Dosage: 15 MG, UNK
     Route: 065
     Dates: start: 201512, end: 20160310
  12. CINITAPRIDE [Concomitant]
     Indication: HIATUS HERNIA
     Dosage: 1 MG, UNK (BEFORE EACH MEAL)
  13. JAKAVI [Suspect]
     Active Substance: RUXOLITINIB
     Dosage: 0.5 DF, QD (HALF TABLET OF 20 MG)
     Route: 065
  14. ALLOPURINOL. [Concomitant]
     Active Substance: ALLOPURINOL
     Indication: BLOOD URIC ACID INCREASED
     Dosage: UNK UNK, PRN
     Route: 065
  15. JAKAVI [Suspect]
     Active Substance: RUXOLITINIB
     Dosage: 20 MG, UNK
     Route: 065
  16. JAKAVI [Suspect]
     Active Substance: RUXOLITINIB
     Dosage: 10 MG, UNK
     Route: 065
  17. CINITAPRIDE [Concomitant]
     Dosage: 1 MG, UNK (BEFORE EACH MEAL)
     Route: 065
  18. FOLIC ACID. [Concomitant]
     Active Substance: FOLIC ACID
     Indication: MYELOFIBROSIS
     Dosage: 2 OT, QD
     Route: 065
     Dates: start: 201506
  19. ALLOPURINOL. [Concomitant]
     Active Substance: ALLOPURINOL
     Dosage: UNK UNK, PRN
     Route: 065
  20. CINITAPRIDE [Concomitant]
     Dosage: 1 MG, UNK (BEFORE EACH MEAL)
     Route: 065

REACTIONS (4)
  - Wrong technique in product usage process [Not Recovered/Not Resolved]
  - Myelofibrosis [Recovering/Resolving]
  - Anaemia [Recovered/Resolved]
  - Disease recurrence [Recovering/Resolving]

NARRATIVE: CASE EVENT DATE: 201510
